FAERS Safety Report 21445558 (Version 1)
Quarter: 2022Q4

REPORT INFORMATION
  Report Type: Report from Study
  Country: US (occurrence: US)
  Receive Date: 20221012
  Receipt Date: 20221012
  Transmission Date: 20230113
  Serious: Yes (Other)
  Sender: FDA-Public Use
  Company Number: US-ABBVIE-4149868

PATIENT
  Age: 45 Year
  Sex: Female

DRUGS (1)
  1. HUMIRA [Suspect]
     Active Substance: ADALIMUMAB
     Indication: Crohn^s disease
     Route: 058
     Dates: start: 201901, end: 2020

REACTIONS (4)
  - Organ failure [Recovered/Resolved]
  - Catheter site infection [Unknown]
  - Coma [Unknown]
  - Immunosuppression [Unknown]

NARRATIVE: CASE EVENT DATE: 20200901
